FAERS Safety Report 7691429-7 (Version None)
Quarter: 2011Q3

REPORT INFORMATION
  Report Type: 
  Country: None (occurrence: None)
  Receive Date: 20110818
  Receipt Date: 20110812
  Transmission Date: 20111222
  Serious: Yes (Other)
  Sender: FDA-Public Use
  Company Number: PHHY2011BR72760

PATIENT
  Age: 16 Month
  Sex: Male

DRUGS (1)
  1. ZADITEN [Suspect]
     Indication: RESPIRATORY DISORDER
     Dosage: 11 DRP, DAILY
     Route: 048
     Dates: start: 20110805

REACTIONS (1)
  - ABDOMINAL PAIN [None]
